FAERS Safety Report 20355041 (Version 1)
Quarter: 2022Q1

REPORT INFORMATION
  Report Type: Spontaneous
  Country: US (occurrence: None)
  Receive Date: 20220120
  Receipt Date: 20220120
  Transmission Date: 20220423
  Serious: Yes (Hospitalization)
  Sender: FDA-Public Use
  Company Number: None

PATIENT
  Age: 70 Year
  Sex: Female
  Weight: 89.36 kg

DRUGS (6)
  1. VINCRISTINE SULFATE [Suspect]
     Active Substance: VINCRISTINE SULFATE
     Indication: Product used for unknown indication
     Dates: end: 20201020
  2. CYCLOPHOSPHAMIDE [Suspect]
     Active Substance: CYCLOPHOSPHAMIDE
     Dates: end: 20201020
  3. DOXORUBICIN HYDROCHLORIDE [Suspect]
     Active Substance: DOXORUBICIN HYDROCHLORIDE
     Dates: end: 20201020
  4. ETOPOSIDE [Suspect]
     Active Substance: ETOPOSIDE
     Dates: end: 20201020
  5. PREDNISONE [Suspect]
     Active Substance: PREDNISONE
     Dates: end: 20201020
  6. RITUXIMAB [Suspect]
     Active Substance: RITUXIMAB
     Dates: end: 20201015

REACTIONS (1)
  - Peripheral sensory neuropathy [None]

NARRATIVE: CASE EVENT DATE: 20201105
